FAERS Safety Report 24685695 (Version 1)
Quarter: 2024Q4

REPORT INFORMATION
  Report Type: Spontaneous
  Country: US (occurrence: None)
  Receive Date: 20241127
  Receipt Date: 20241127
  Transmission Date: 20250115
  Serious: Yes (Hospitalization)
  Sender: Public
  Company Number: None

PATIENT
  Age: 43 Year
  Sex: Female
  Weight: 52.2 kg

DRUGS (1)
  1. BOTULINUM TOXIN NOS [Suspect]
     Active Substance: BOTULINUM TOXIN NOS
     Indication: Skin cosmetic procedure
     Dosage: 1.25 ML EVERY 3-4 MONTHS INTRMUSCULAR?
     Route: 030
     Dates: end: 20241117

REACTIONS (3)
  - Botulism [None]
  - Post procedural complication [None]
  - Iatrogenic infection [None]

NARRATIVE: CASE EVENT DATE: 20241127
